FAERS Safety Report 7114227-1 (Version None)
Quarter: 2010Q4

REPORT INFORMATION
  Report Type: 
  Country: None (occurrence: None)
  Receive Date: 20101119
  Receipt Date: 20101101
  Transmission Date: 20110411
  Serious: Yes (Other)
  Sender: FDA-Public Use
  Company Number: US-BAYER-201030265NA

PATIENT
  Age: 41 Year
  Sex: Female
  Weight: 59 kg

DRUGS (4)
  1. YASMIN [Suspect]
     Indication: CONTRACEPTION
     Route: 048
     Dates: start: 20020701, end: 20070901
  2. ADVIL [Concomitant]
     Indication: HEADACHE
  3. EXCEDRIN (MIGRAINE) [Concomitant]
     Indication: HEADACHE
  4. PRILOSEC [Concomitant]
     Indication: DYSPEPSIA

REACTIONS (5)
  - ABDOMINAL PAIN [None]
  - BILIARY DYSKINESIA [None]
  - EMOTIONAL DISTRESS [None]
  - GALLBLADDER INJURY [None]
  - NAUSEA [None]
